FAERS Safety Report 20814328 (Version 3)
Quarter: 2022Q3

REPORT INFORMATION
  Report Type: Spontaneous
  Country: US (occurrence: US)
  Receive Date: 20220511
  Receipt Date: 20220728
  Transmission Date: 20221027
  Serious: No
  Sender: FDA-Public Use
  Company Number: US-BIOGEN-2020BI00833495

PATIENT
  Sex: Female

DRUGS (5)
  1. TECFIDERA [Suspect]
     Active Substance: DIMETHYL FUMARATE
     Indication: Multiple sclerosis
     Route: 050
     Dates: start: 20140718, end: 20170531
  2. TECFIDERA [Suspect]
     Active Substance: DIMETHYL FUMARATE
     Route: 050
     Dates: start: 20180405, end: 20200522
  3. TECFIDERA [Suspect]
     Active Substance: DIMETHYL FUMARATE
     Route: 050
     Dates: end: 20200225
  4. TECFIDERA [Suspect]
     Active Substance: DIMETHYL FUMARATE
     Route: 050
  5. ZINBRYTA [Suspect]
     Active Substance: DACLIZUMAB
     Indication: Multiple sclerosis
     Route: 050
     Dates: start: 20170525

REACTIONS (4)
  - Memory impairment [Unknown]
  - Cognitive disorder [Unknown]
  - Nervousness [Unknown]
  - Multiple sclerosis [Unknown]
